FAERS Safety Report 6832383-7 (Version None)
Quarter: 2010Q3

REPORT INFORMATION
  Report Type: 
  Country: None (occurrence: None)
  Receive Date: 20100707
  Receipt Date: 20100624
  Transmission Date: 20110219
  Serious: Yes (Other)
  Sender: FDA-Public Use
  Company Number: 7008850

PATIENT
  Age: 25 Year
  Sex: Female
  Weight: 85 kg

DRUGS (4)
  1. REBIF [Suspect]
     Indication: MULTIPLE SCLEROSIS
     Dosage: 44, 22 3 IN 1 WK, 8.8 3 IN 1 WK,
     Dates: start: 20080701, end: 20081001
  2. REBIF [Suspect]
     Indication: MULTIPLE SCLEROSIS
     Dosage: 44, 22 3 IN 1 WK, 8.8 3 IN 1 WK,
     Dates: end: 20100622
  3. REBIF [Suspect]
     Indication: MULTIPLE SCLEROSIS
     Dosage: 44, 22 3 IN 1 WK, 8.8 3 IN 1 WK,
     Dates: start: 20080601
  4. MIRTAZAPINE [Concomitant]

REACTIONS (4)
  - ALANINE AMINOTRANSFERASE INCREASED [None]
  - ASPARTATE AMINOTRANSFERASE INCREASED [None]
  - HEPATOMEGALY [None]
  - WEIGHT INCREASED [None]
